FAERS Safety Report 7988836 (Version 2)
Quarter: 2012Q4

REPORT INFORMATION
  Report Type: 
  Country: CA (occurrence: CA)
  Receive Date: 20110613
  Receipt Date: 20121104
  Transmission Date: 20130627
  Serious: Yes (Other)
  Sender: FDA-Public Use
  Company Number: PHMT2007CA01873

PATIENT
  Age: 52 Year
  Sex: Female

DRUGS (6)
  1. SANDOSTATIN LAR [Suspect]
     Indication: THYMOMA MALIGNANT
     Dosage: 30 mg, UNK
     Route: 030
     Dates: start: 20070712
  2. INSULIN [Concomitant]
  3. L-THYROXINE [Concomitant]
  4. RANITIDINE [Concomitant]
  5. HYDROCORTISONE [Concomitant]
  6. FLUORINEF [Concomitant]

REACTIONS (16)
  - Syncope [Recovered/Resolved]
  - Presyncope [Recovered/Resolved]
  - Hormone level abnormal [Unknown]
  - Blood thyroid stimulating hormone increased [Unknown]
  - Thyroxine decreased [Unknown]
  - Tri-iodothyronine decreased [Unknown]
  - Loss of consciousness [Unknown]
  - Blood pressure increased [Unknown]
  - Influenza like illness [Unknown]
  - Alopecia [Unknown]
  - Nausea [Unknown]
  - Abdominal distension [Unknown]
  - Heart rate decreased [Unknown]
  - Dizziness [Unknown]
  - Injection site pain [Unknown]
  - Decreased appetite [Unknown]
